FAERS Safety Report 5204047-7 (Version None)
Quarter: 2007Q1

REPORT INFORMATION
  Report Type: 
  Country: None (occurrence: None)
  Receive Date: 20070110
  Receipt Date: 20051103
  Transmission Date: 20070707
  Serious: No
  Sender: FDA-Public Use
  Company Number: US-BRISTOL-MYERS SQUIBB COMPANY-13167481

PATIENT
  Age: 56 Year
  Sex: Female
  Weight: 63 kg

DRUGS (8)
  1. ABILIFY [Suspect]
     Indication: PSYCHOTIC DISORDER
     Dosage: INCREASED TO 7.5 MG DAILY ON 27-OCT-2005, REDUCED BACK TO 5 MG DAILY
     Route: 048
     Dates: start: 20040101
  2. ABILIFY [Suspect]
     Indication: MANIA
     Dosage: INCREASED TO 7.5 MG DAILY ON 27-OCT-2005, REDUCED BACK TO 5 MG DAILY
     Route: 048
     Dates: start: 20040101
  3. ABILIFY [Suspect]
     Indication: BIPOLAR DISORDER
     Dosage: INCREASED TO 7.5 MG DAILY ON 27-OCT-2005, REDUCED BACK TO 5 MG DAILY
     Route: 048
     Dates: start: 20040101
  4. TEGRETOL [Concomitant]
  5. LORAZEPAM [Concomitant]
  6. LEXAPRO [Concomitant]
  7. RELAFEN [Concomitant]
  8. PLAQUENIL [Concomitant]

REACTIONS (3)
  - DIZZINESS [None]
  - FAECES DISCOLOURED [None]
  - WEIGHT INCREASED [None]
